FAERS Safety Report 10764859 (Version 1)
Quarter: 2015Q1

REPORT INFORMATION
  Report Type: Spontaneous
  Country: US (occurrence: None)
  Receive Date: 20150204
  Receipt Date: 20150204
  Transmission Date: 20150721
  Serious: No
  Sender: FDA-Public Use
  Company Number: None

PATIENT

DRUGS (2)
  1. CLONAZEPAM (CLONAZEPAM) [Suspect]
     Active Substance: CLONAZEPAM
  2. CLOZAPINE (CLOZAPINE) [Suspect]
     Active Substance: CLOZAPINE

REACTIONS (6)
  - Seizure [None]
  - Wrong drug administered [None]
  - Wrong technique in drug usage process [None]
  - Incorrect route of drug administration [None]
  - Product name confusion [None]
  - Medication error [None]
